FAERS Safety Report 16595489 (Version 1)
Quarter: 2019Q3

REPORT INFORMATION
  Report Type: Spontaneous
  Country: US (occurrence: US)
  Receive Date: 20190605
  Receipt Date: 20190605
  Transmission Date: 20191004
  Serious: No
  Sender: FDA-Public Use
  Company Number: None

PATIENT

DRUGS (1)
  1. NOVOLOG MIX 70/30 [Suspect]
     Active Substance: INSULIN ASPART

REACTIONS (5)
  - Blood glucose decreased [None]
  - Unresponsive to stimuli [None]
  - Product communication issue [None]
  - Product label confusion [None]
  - Incorrect dose administered [None]
